FAERS Safety Report 20003785 (Version 2)
Quarter: 2021Q4

REPORT INFORMATION
  Report Type: Spontaneous
  Country: US (occurrence: None)
  Receive Date: 20211027
  Receipt Date: 20211207
  Transmission Date: 20220303
  Serious: No
  Sender: FDA-Public Use
  Company Number: 2021A775763

PATIENT
  Age: 931 Month
  Sex: Male
  Weight: 98 kg

DRUGS (1)
  1. BYDUREON BCISE [Suspect]
     Active Substance: EXENATIDE
     Indication: Type 2 diabetes mellitus
     Route: 058
     Dates: start: 202001

REACTIONS (4)
  - Injection site urticaria [Recovering/Resolving]
  - Wrong technique in device usage process [Unknown]
  - Device issue [Unknown]
  - Product contamination [Unknown]

NARRATIVE: CASE EVENT DATE: 20200101
